FAERS Safety Report 5421775-9 (Version None)
Quarter: 2007Q4

REPORT INFORMATION
  Report Type: 
  Country: None (occurrence: None)
  Receive Date: 20070820
  Receipt Date: 20070810
  Transmission Date: 20080405
  Serious: Yes (Hospitalization)
  Sender: FDA-Public Use
  Company Number: 2007BI014797

PATIENT
  Age: 68 Year
  Sex: Female

DRUGS (1)
  1. AVONEX [Suspect]
     Indication: MULTIPLE SCLEROSIS
     Dosage: 30 UG QW IM
     Route: 030
     Dates: start: 20061111

REACTIONS (5)
  - COLON CANCER [None]
  - DYSURIA [None]
  - INTESTINAL FUNCTIONAL DISORDER [None]
  - PAIN [None]
  - PNEUMONIA [None]
